FAERS Safety Report 8702350 (Version 3)
Quarter: 2012Q4

REPORT INFORMATION
  Report Type: Report from Study
  Country: RU (occurrence: RU)
  Receive Date: 20120803
  Receipt Date: 20121227
  Transmission Date: 20130627
  Serious: Yes (Death, Hospitalization)
  Sender: FDA-Public Use
  Company Number: RU-CELGENEUS-251-21880-12070412

PATIENT
  Age: 66 Year
  Sex: Male
  Weight: 64 kg

DRUGS (13)
  1. REVLIMID [Suspect]
     Indication: MULTIPLE MYELOMA
     Dosage: 25 Milligram
     Route: 048
     Dates: start: 20110912, end: 20111002
  2. REVLIMID [Suspect]
     Dosage: 25 Milligram
     Route: 048
     Dates: start: 20120619, end: 20120709
  3. DEXAMETHASONE [Suspect]
     Indication: MULTIPLE MYELOMA
     Route: 065
     Dates: start: 20110912, end: 20111003
  4. DEXAMETHASONE [Suspect]
     Route: 065
     Dates: start: 20120619, end: 20120710
  5. ASPIRINE [Concomitant]
     Indication: ANTICOAGULANT THERAPY
     Dosage: 100 Milligram
     Route: 048
     Dates: start: 20110911, end: 20120711
  6. DIABETON [Concomitant]
     Indication: DIABETES
     Dosage: 90 Milligram
     Route: 048
     Dates: start: 20110916
  7. EGILOK [Concomitant]
     Indication: HYPERTENSION ARTERIAL
     Dosage: 50 Milligram
     Route: 048
     Dates: start: 20110825
  8. LANZOPRAZOL [Concomitant]
     Indication: PROPHYLAXIS
     Dosage: 30 Milligram
     Route: 048
     Dates: start: 20110911, end: 20120711
  9. METFORMIN [Concomitant]
     Indication: DIABETES
     Dosage: 850 Milligram
     Route: 048
     Dates: start: 20110916
  10. ZOMETA [Concomitant]
     Indication: PROPHYLAXIS
     Route: 041
     Dates: start: 20110911
  11. ACTRAPID [Concomitant]
     Indication: DIABETES
     Dosage: 10 IU (International Unit)
     Route: 058
     Dates: start: 20120710, end: 20120711
  12. CEFEPIM [Concomitant]
     Indication: CHRONIC BRONCHITIS
     Dosage: 4000 Milligram
     Route: 041
     Dates: start: 20120705, end: 20120711
  13. HEPTRAL [Concomitant]
     Indication: HEPATITIS TOXIC
     Dosage: 800 Milligram
     Route: 041
     Dates: start: 20120705, end: 20120711

REACTIONS (1)
  - Acute coronary syndrome [Fatal]
